FAERS Safety Report 25715136 (Version 1)
Quarter: 2025Q3

REPORT INFORMATION
  Report Type: Spontaneous
  Country: EU (occurrence: EU)
  Receive Date: 20250822
  Receipt Date: 20250822
  Transmission Date: 20251020
  Serious: Yes (Hospitalization, Congenital Anomaly, Other)
  Sender: RANBAXY
  Company Number: EU-AFSSAPS-MP2025000660

PATIENT
  Sex: Female
  Weight: 3.6 kg

DRUGS (1)
  1. SERTRALINE [Suspect]
     Active Substance: SERTRALINE HYDROCHLORIDE
     Indication: Depression
     Dosage: 25 MILLIGRAM, DAILY
     Route: 064
     Dates: start: 20240604, end: 20250218

REACTIONS (4)
  - Neonatal respiratory distress [Recovered/Resolved]
  - Immature respiratory system [Recovered/Resolved]
  - Laryngomalacia [Not Recovered/Not Resolved]
  - Foetal exposure during pregnancy [Recovered/Resolved]

NARRATIVE: CASE EVENT DATE: 20250218
